FAERS Safety Report 15969061 (Version 4)
Quarter: 2019Q3

REPORT INFORMATION
  Report Type: Report from Study
  Country: CA (occurrence: CA)
  Receive Date: 20190215
  Receipt Date: 20190925
  Transmission Date: 20191004
  Serious: Yes (Other)
  Sender: FDA-Public Use
  Company Number: PHHY2019CA033596

PATIENT
  Age: 70 Year
  Sex: Female

DRUGS (3)
  1. ERELZI [Suspect]
     Active Substance: ETANERCEPT-SZZS
     Indication: RHEUMATOID ARTHRITIS
     Dosage: 50 MG, QW
     Route: 058
     Dates: start: 20190131
  2. IMMUNOGLOBULIN IV [Concomitant]
     Active Substance: HUMAN IMMUNOGLOBULIN G
     Indication: DECREASED IMMUNE RESPONSIVENESS
     Route: 042
  3. ERELZI [Suspect]
     Active Substance: ETANERCEPT-SZZS
     Dosage: 50 MG, QW
     Route: 058

REACTIONS (6)
  - Incorrect dose administered [Unknown]
  - Pulmonary congestion [Unknown]
  - Chest discomfort [Unknown]
  - Influenza [Unknown]
  - Bronchitis [Recovered/Resolved]
  - Adnexa uteri pain [Unknown]

NARRATIVE: CASE EVENT DATE: 20190131
